FAERS Safety Report 8810423 (Version 1)
Quarter: 2012Q4

REPORT INFORMATION
  Report Type: 
  Country: US (occurrence: US)
  Receive Date: 20120927
  Receipt Date: 20120927
  Transmission Date: 20130627
  Serious: Yes (Hospitalization, Other)
  Sender: FDA-Public Use
  Company Number: US-AMGEN-USASP2012060627

PATIENT
  Age: 52 Year
  Sex: Female

DRUGS (1)
  1. ENBREL [Suspect]
     Indication: RHEUMATOID ARTHRITIS
     Dosage: 50 mg, qwk
     Dates: start: 20010901

REACTIONS (9)
  - Wrist fracture [Recovered/Resolved]
  - Lumbar vertebral fracture [Recovered/Resolved]
  - Osteomyelitis [Recovered/Resolved]
  - Rheumatoid arthritis [Recovered/Resolved]
  - Drug effect incomplete [Not Recovered/Not Resolved]
  - Fall [Recovered/Resolved]
  - Gait disturbance [Not Recovered/Not Resolved]
  - Back pain [Not Recovered/Not Resolved]
  - Device related infection [Recovered/Resolved]
